FAERS Safety Report 18425562 (Version 1)
Quarter: 2020Q4

REPORT INFORMATION
  Report Type: Spontaneous
  Country: US (occurrence: US)
  Receive Date: 20201024
  Receipt Date: 20201024
  Transmission Date: 20210114
  Serious: No
  Sender: FDA-Public Use
  Company Number: None

PATIENT
  Age: 7 Year
  Sex: Male
  Weight: 22.95 kg

DRUGS (1)
  1. DEXMETHYLPHENIDATE XR [Suspect]
     Active Substance: DEXMETHYLPHENIDATE HYDROCHLORIDE
     Indication: ATTENTION DEFICIT HYPERACTIVITY DISORDER
     Route: 048

REACTIONS (4)
  - Therapeutic product effect variable [None]
  - Product quality issue [None]
  - Abnormal behaviour [None]
  - Product physical issue [None]

NARRATIVE: CASE EVENT DATE: 20201023
